FAERS Safety Report 17508842 (Version 2)
Quarter: 2020Q2

REPORT INFORMATION
  Report Type: Spontaneous
  Country: US (occurrence: US)
  Receive Date: 20200306
  Receipt Date: 20200622
  Transmission Date: 20200713
  Serious: Yes (Hospitalization)
  Sender: FDA-Public Use
  Company Number: US-PFIZER INC-2020096557

PATIENT
  Age: 69 Year
  Sex: Female
  Weight: 89.81 kg

DRUGS (3)
  1. ADVIL [Suspect]
     Active Substance: IBUPROFEN
     Indication: HEADACHE
     Dosage: 400 MG
  2. ADVIL [Suspect]
     Active Substance: IBUPROFEN
     Indication: PAIN
     Dosage: 200 MG, 4 TO 6 TIMES/OFF AND ON FOR MONTHS AS NEEDED
  3. ADVIL [Suspect]
     Active Substance: IBUPROFEN
     Indication: ARTHRITIS
     Dosage: 200 MG

REACTIONS (4)
  - Dizziness [Unknown]
  - Headache [Unknown]
  - Gastric polyps [Recovered/Resolved]
  - Abdominal discomfort [Unknown]
